FAERS Safety Report 23208913 (Version 1)
Quarter: 2023Q4

REPORT INFORMATION
  Report Type: Spontaneous
  Country: US (occurrence: US)
  Receive Date: 20231121
  Receipt Date: 20231121
  Transmission Date: 20240110
  Serious: Yes (Death, Other)
  Sender: FDA-Public Use
  Company Number: US-ENDO-CASE-0044468

PATIENT
  Sex: Female

DRUGS (2)
  1. ENDOCET [Suspect]
     Active Substance: ACETAMINOPHEN\OXYCODONE HYDROCHLORIDE
  2. OXYCONTIN [Suspect]
     Active Substance: OXYCODONE HYDROCHLORIDE

REACTIONS (8)
  - Overdose [Unknown]
  - Dependence [Unknown]
  - Tremor [Unknown]
  - Sneezing [Unknown]
  - Nausea [Unknown]
  - Headache [Unknown]
  - Death [Fatal]
  - Chills [Unknown]
